FAERS Safety Report 7937329-6 (Version None)
Quarter: 2011Q4

REPORT INFORMATION
  Report Type: 
  Country: None (occurrence: None)
  Receive Date: 20111123
  Receipt Date: 20110902
  Transmission Date: 20120403
  Serious: No
  Sender: FDA-Public Use
  Company Number: US-BAYER-2011-088330

PATIENT
  Age: 28 Year
  Sex: Male

DRUGS (3)
  1. ALEVE (CAPLET) [Suspect]
     Indication: ARTHRALGIA
     Dosage: 2 DF, ONCE
     Route: 048
     Dates: start: 20110902
  2. IBUPROFEN [Suspect]
     Indication: ARTHRALGIA
     Dosage: 2 DF, ONCE
     Route: 048
     Dates: start: 20110902
  3. IBUPROFEN [Suspect]
     Indication: JOINT SWELLING
     Dosage: 2 DF, ONCE
     Route: 048
     Dates: start: 20110902

REACTIONS (2)
  - SLOW SPEECH [None]
  - FEELING ABNORMAL [None]
